FAERS Safety Report 5379352-4 (Version None)
Quarter: 2007Q3

REPORT INFORMATION
  Report Type: 
  Country: None (occurrence: None)
  Receive Date: 20070705
  Receipt Date: 20070626
  Transmission Date: 20080115
  Serious: Yes (Hospitalization)
  Sender: FDA-Public Use
  Company Number: FR-PFIZER INC-2007047141

PATIENT
  Sex: Female

DRUGS (6)
  1. SU-011,248 [Suspect]
     Indication: METASTATIC RENAL CELL CARCINOMA
     Route: 048
     Dates: start: 20060309, end: 20060405
  2. SU-011,248 [Suspect]
     Route: 048
     Dates: start: 20060517, end: 20060906
  3. SU-011,248 [Suspect]
     Route: 048
     Dates: start: 20061019, end: 20061113
  4. SU-011,248 [Suspect]
     Route: 048
     Dates: start: 20061130, end: 20070207
  5. SU-011,248 [Suspect]
     Route: 048
     Dates: start: 20070305, end: 20070401
  6. SU-011,248 [Suspect]
     Route: 048
     Dates: start: 20070423, end: 20070520

REACTIONS (5)
  - ANAEMIA [None]
  - COLITIS [None]
  - FATIGUE [None]
  - OESOPHAGITIS [None]
  - RECTAL HAEMORRHAGE [None]
